FAERS Safety Report 11723924 (Version 2)
Quarter: 2015Q4

REPORT INFORMATION
  Report Type: Spontaneous
  Country: US (occurrence: US)
  Receive Date: 20151111
  Receipt Date: 20151125
  Transmission Date: 20160304
  Serious: Yes (Death)
  Sender: FDA-Public Use
  Company Number: US-VERTEX PHARMACEUTICALS-2015-005015

PATIENT
  Age: 28 Year
  Sex: Male
  Weight: 64 kg

DRUGS (18)
  1. ORKAMBI [Suspect]
     Active Substance: IVACAFTOR\LUMACAFTOR
     Indication: CYSTIC FIBROSIS
     Dosage: 200-125MG, 2 DF, BID
     Route: 048
     Dates: start: 20150811, end: 20151015
  2. ACETYLCYSTEINE. [Concomitant]
     Active Substance: ACETYLCYSTEINE
     Dosage: 600 MG, QID
     Route: 048
  3. NOVOLOG [Concomitant]
     Active Substance: INSULIN ASPART
     Dosage: INJECT 1 UNIT UNDER THE SKIN TID BEFORE MEALS
  4. STERILE WATER [Concomitant]
     Active Substance: WATER
     Dosage: USE 6ML TO RECONSTITUTE COLISTIMETHATE
  5. ZENPEP [Concomitant]
     Active Substance: PANCRELIPASE\PANCRELIPASE AMYLASE\PANCRELIPASE LIPASE\PANCRELIPASE PROTEASE
     Dosage: TAKE 5 CAPSULES WITH MEALS AND 3 CAPSULES WITH SNACKS
     Route: 048
  6. ZITHROMAX [Concomitant]
     Active Substance: AZITHROMYCIN DIHYDRATE
     Dosage: 1 TABLET ON MONDAYS, WEDNESDAYS, FRIDAYS
     Route: 048
  7. PRILOSEC [Concomitant]
     Active Substance: OMEPRAZOLE MAGNESIUM
     Dosage: 1 DF, EVERY MORNING BEFORE BREAKFAST
     Route: 048
  8. PULMOZYME [Concomitant]
     Active Substance: DORNASE ALFA
     Dosage: 1 AMPULE INTO THE LUNGS ONCE DAILY
  9. ACTIGALL [Concomitant]
     Active Substance: URSODIOL
     Dosage: 2 DF, BID
  10. VITAMIN D3 [Concomitant]
     Active Substance: CHOLECALCIFEROL
     Dosage: 50000 UNITS ONCE A WEEK
     Route: 048
  11. COLYMYCIN [Concomitant]
     Dosage: RECONSTITUTE WITH 6ML STERILE WATER AND NEBULIZE 75MG, BID
  12. PROVENTIL HFA [Concomitant]
     Active Substance: ALBUTEROL SULFATE
     Dosage: 2 PUFFS, BID
  13. LEVEMIR [Concomitant]
     Active Substance: INSULIN DETEMIR
     Dosage: INJECT 10 UNITS UNDER THE SKIN DAILY
  14. AQUADEKS [Concomitant]
     Dosage: 1 DF, BID WITH MEALS
  15. CAYSTON [Concomitant]
     Active Substance: AZTREONAM
     Dosage: 75 MG, TID
  16. ADVAIR HFA [Concomitant]
     Active Substance: FLUTICASONE PROPIONATE\SALMETEROL XINAFOATE
     Dosage: 1 DF, BID
  17. ROXICODONE [Concomitant]
     Active Substance: OXYCODONE HYDROCHLORIDE
     Dosage: 600 MG, QID
     Route: 048
  18. SODIUM CHLORIDE. [Concomitant]
     Active Substance: SODIUM CHLORIDE
     Dosage: UNK, BID

REACTIONS (1)
  - Cystic fibrosis [Fatal]

NARRATIVE: CASE EVENT DATE: 20151015
